FAERS Safety Report 17035220 (Version 2)
Quarter: 2019Q4

REPORT INFORMATION
  Report Type: Spontaneous
  Country: US (occurrence: US)
  Receive Date: 20191115
  Receipt Date: 20191219
  Transmission Date: 20200122
  Serious: No
  Sender: FDA-Public Use
  Company Number: US-KARYOPHARM-2019KPT000761

PATIENT

DRUGS (4)
  1. XPOVIO [Suspect]
     Active Substance: SELINEXOR
     Indication: PLASMA CELL MYELOMA
     Dosage: 80 MG, WEEKLY
     Route: 048
     Dates: start: 20191017, end: 20191017
  2. XPOVIO [Suspect]
     Active Substance: SELINEXOR
     Dosage: UNK
  3. ZOFRAN [Concomitant]
     Active Substance: ONDANSETRON HYDROCHLORIDE
     Indication: NAUSEA
  4. COMPAZINE [Concomitant]
     Active Substance: PROCHLORPERAZINE MALEATE
     Indication: NAUSEA

REACTIONS (15)
  - Dizziness [Unknown]
  - Fall [Recovered/Resolved]
  - Therapeutic product ineffective [Unknown]
  - Hypotension [Recovering/Resolving]
  - Hyponatraemia [Unknown]
  - Decreased appetite [Unknown]
  - Asthenia [Unknown]
  - Red blood cell count decreased [Not Recovered/Not Resolved]
  - Nausea [Not Recovered/Not Resolved]
  - Fatigue [Unknown]
  - Weight decreased [Not Recovered/Not Resolved]
  - Renal impairment [Recovering/Resolving]
  - Plasma cell myeloma [Not Recovered/Not Resolved]
  - Vomiting [Not Recovered/Not Resolved]
  - Thrombocytopenia [Not Recovered/Not Resolved]
